FAERS Safety Report 8111205-0 (Version None)
Quarter: 2012Q1

REPORT INFORMATION
  Report Type: 
  Country: None (occurrence: None)
  Receive Date: 20120203
  Receipt Date: 20110621
  Transmission Date: 20120608
  Serious: No
  Sender: FDA-Public Use
  Company Number: US-GLAXOSMITHKLINE-A0932226A

PATIENT
  Age: 73 Year
  Sex: Female

DRUGS (13)
  1. LOSARTAN POTASSIUM [Concomitant]
  2. METFORMIN HCL [Concomitant]
  3. KLONOPIN [Concomitant]
  4. SYNTHROID [Concomitant]
  5. PENTASA [Concomitant]
  6. NEXIUM [Concomitant]
  7. NORVASC [Concomitant]
  8. LOVASTATIN [Concomitant]
  9. CITRACAL [Concomitant]
  10. LEVAQUIN [Concomitant]
  11. PROZAC [Concomitant]
  12. LAMICTAL [Suspect]
     Indication: BIPOLAR DISORDER
     Dosage: 25MG PER DAY
     Route: 048
     Dates: start: 20110608
  13. VITAMIN D [Concomitant]

REACTIONS (5)
  - CHILLS [None]
  - FATIGUE [None]
  - SOMNOLENCE [None]
  - PYREXIA [None]
  - HYPERSENSITIVITY [None]
